FAERS Safety Report 13795380 (Version 2)
Quarter: 2017Q3

REPORT INFORMATION
  Report Type: Report from Study
  Country: US (occurrence: US)
  Receive Date: 20170726
  Receipt Date: 20170808
  Transmission Date: 20171127
  Serious: Yes (Hospitalization)
  Sender: FDA-Public Use
  Company Number: US-ACTELION-A-US2017-157156

PATIENT
  Age: 69 Year
  Sex: Male

DRUGS (3)
  1. VELETRI [Suspect]
     Active Substance: EPOPROSTENOL
     Indication: PULMONARY ARTERIAL HYPERTENSION
     Dosage: 18 NG/KG, PER MIN
     Route: 042
  2. ELIQUIS [Concomitant]
     Active Substance: APIXABAN
  3. SILDENAFIL. [Concomitant]
     Active Substance: SILDENAFIL
     Indication: PULMONARY ARTERIAL HYPERTENSION

REACTIONS (8)
  - Catheter site pain [Unknown]
  - Thrombosis [Unknown]
  - Catheter management [Unknown]
  - Catheter site discharge [Unknown]
  - Swelling [Unknown]
  - Catheter site erythema [Unknown]
  - Catheter site swelling [Unknown]
  - Device related infection [Unknown]
